FAERS Safety Report 12651808 (Version 1)
Quarter: 2016Q3

REPORT INFORMATION
  Report Type: Spontaneous
  Country: US (occurrence: US)
  Receive Date: 20160815
  Receipt Date: 20160815
  Transmission Date: 20161109
  Serious: No
  Sender: FDA-Public Use
  Company Number: US-GALDERMA-US15007776

PATIENT
  Age: 40 Year
  Sex: Female

DRUGS (3)
  1. LESSINA (ETHINYL ESTRADIOL AND LEVONORGESTREL) [Concomitant]
     Indication: CONTRACEPTION
     Route: 048
  2. UNKNOWN MOISTURIZER [Concomitant]
     Route: 061
  3. DIFFERIN [Suspect]
     Active Substance: ADAPALENE
     Indication: ACNE
     Dosage: 0.3%
     Route: 061
     Dates: start: 2010, end: 2012

REACTIONS (1)
  - Drug ineffective [Recovered/Resolved]

NARRATIVE: CASE EVENT DATE: 2012
